FAERS Safety Report 8542567-8 (Version None)
Quarter: 2012Q3

REPORT INFORMATION
  Report Type: 
  Country: None (occurrence: None)
  Receive Date: 20120726
  Receipt Date: 20120720
  Transmission Date: 20120928
  Serious: Yes (Hospitalization)
  Sender: FDA-Public Use
  Company Number: CA-ABBOTT-12P-028-0959040-00

PATIENT
  Sex: Female
  Weight: 70.37 kg

DRUGS (2)
  1. HUMIRA [Suspect]
     Indication: PSORIATIC ARTHROPATHY
     Route: 058
     Dates: start: 20110319, end: 20120712
  2. ARAVA [Concomitant]
     Indication: PSORIATIC ARTHROPATHY
     Route: 058
     Dates: start: 20120501

REACTIONS (2)
  - MYOCARDIAL INFARCTION [None]
  - ANGINA PECTORIS [None]
